FAERS Safety Report 18867569 (Version 1)
Quarter: 2021Q1

REPORT INFORMATION
  Report Type: Report from Study
  Country: BR (occurrence: BR)
  Receive Date: 20210209
  Receipt Date: 20210209
  Transmission Date: 20210420
  Serious: Yes (Other)
  Sender: FDA-Public Use
  Company Number: NVSC2021BR028606

PATIENT
  Age: 60 Year
  Sex: Male

DRUGS (2)
  1. DIOVAN HCT [Suspect]
     Active Substance: HYDROCHLOROTHIAZIDE\VALSARTAN
     Indication: PRODUCT USED FOR UNKNOWN INDICATION
     Dosage: 1 DF, (160 AND 12,5 MG, CONTINUOUS USAGE)
     Route: 065
  2. DIOVAN [Suspect]
     Active Substance: VALSARTAN
     Indication: PRODUCT USED FOR UNKNOWN INDICATION
     Dosage: 160 MG, UNK (STARTED AT THE END OF DEC 2020)
     Route: 048
     Dates: start: 202012, end: 202012

REACTIONS (6)
  - Arrhythmia [Recovered/Resolved]
  - Sluggishness [Recovered/Resolved]
  - Tachycardia [Unknown]
  - Wrong product administered [Unknown]
  - Malaise [Unknown]
  - Heart rate increased [Unknown]

NARRATIVE: CASE EVENT DATE: 202012
